FAERS Safety Report 17874546 (Version 2)
Quarter: 2020Q3

REPORT INFORMATION
  Report Type: Spontaneous
  Country: US (occurrence: US)
  Receive Date: 20200609
  Receipt Date: 20200907
  Transmission Date: 20201103
  Serious: Yes (Death, Life-Threatening, Hospitalization, Other)
  Sender: FDA-Public Use
  Company Number: US-DRREDDYS-USA/USA/20/0123834

PATIENT
  Age: 29 Year
  Sex: Male
  Weight: 29 kg

DRUGS (1)
  1. HEPARIN SODIUM. [Suspect]
     Active Substance: HEPARIN SODIUM
     Indication: THROMBOSIS PROPHYLAXIS
     Dosage: THE PATIENT RECEIVED UFH AT HIGH WEIGHT?BASED DOSES (MORE THAN 300 UNITS/KG/DAY)
     Route: 065

REACTIONS (3)
  - Post procedural haemorrhage [Fatal]
  - Intraventricular haemorrhage [Fatal]
  - Activated partial thromboplastin time prolonged [Fatal]
